FAERS Safety Report 9493484 (Version 3)
Quarter: 2013Q4

REPORT INFORMATION
  Report Type: Spontaneous
  Country: US (occurrence: US)
  Receive Date: 20130902
  Receipt Date: 20131003
  Transmission Date: 20140711
  Serious: Yes (Other)
  Sender: FDA-Public Use
  Company Number: US-PFIZER INC-2013252254

PATIENT
  Sex: Male

DRUGS (2)
  1. FLECTOR [Suspect]
     Indication: ROTATOR CUFF SYNDROME
     Dosage: UNK
     Dates: start: 2013
  2. MOTRIN [Suspect]
     Indication: PAIN
     Dosage: 600 MG, TWO TO THREE TIMES A DAY

REACTIONS (12)
  - Mental impairment [Unknown]
  - Headache [Unknown]
  - Nausea [Unknown]
  - Feeling abnormal [Unknown]
  - Confusional state [Unknown]
  - Dizziness [Unknown]
  - Somnolence [Unknown]
  - Vision blurred [Unknown]
  - Vomiting [Unknown]
  - Night sweats [Unknown]
  - Drug ineffective [Unknown]
  - Product adhesion issue [Unknown]
